FAERS Safety Report 14549336 (Version 5)
Quarter: 2018Q4

REPORT INFORMATION
  Report Type: Spontaneous
  Country: IT (occurrence: IT)
  Receive Date: 20180219
  Receipt Date: 20181225
  Transmission Date: 20190204
  Serious: Yes (Life-Threatening, Other)
  Sender: FDA-Public Use
  Company Number: IT-ACCORD-063695

PATIENT
  Age: 65 Year
  Sex: Male

DRUGS (6)
  1. CARVEDILOL. [Suspect]
     Active Substance: CARVEDILOL
     Indication: HYPERTENSION
     Route: 048
     Dates: start: 2010
  2. RAMIPRIL. [Suspect]
     Active Substance: RAMIPRIL
     Indication: HYPERTENSION
     Route: 048
     Dates: start: 2010
  3. CRATAEGUS LAEVIGATA [Concomitant]
  4. DOXAZOSIN [Suspect]
     Active Substance: DOXAZOSIN\DOXAZOSIN MESYLATE
     Indication: HYPERTENSION
     Route: 048
     Dates: start: 2010
  5. OLEA EUROPAEA [Concomitant]
  6. HYDROCHLOROTHIAZIDE/RAMIPRIL [Suspect]
     Active Substance: HYDROCHLOROTHIAZIDE\RAMIPRIL
     Indication: HYPERTENSION
     Route: 048
     Dates: start: 2010

REACTIONS (14)
  - Salivary hypersecretion [Recovering/Resolving]
  - Asthma [Recovering/Resolving]
  - Localised oedema [Recovering/Resolving]
  - Speech disorder [Recovering/Resolving]
  - Respiratory disorder [Unknown]
  - Mouth breathing [Recovering/Resolving]
  - Abdominal distension [Recovering/Resolving]
  - Dyspnoea [Recovering/Resolving]
  - Abdominal discomfort [Unknown]
  - Angioedema [Recovering/Resolving]
  - Somnolence [Recovering/Resolving]
  - Orthostatic hypotension [Recovering/Resolving]
  - Oesophageal discomfort [Unknown]
  - Gastric disorder [Recovering/Resolving]

NARRATIVE: CASE EVENT DATE: 2017
